FAERS Safety Report 17205606 (Version 1)
Quarter: 2019Q4

REPORT INFORMATION
  Report Type: Spontaneous
  Country: US (occurrence: US)
  Receive Date: 20191227
  Receipt Date: 20191227
  Transmission Date: 20200122
  Serious: No
  Sender: FDA-Public Use
  Company Number: US-GLAXOSMITHKLINE-US2019230553

PATIENT
  Sex: Female

DRUGS (2)
  1. VENTOLIN HFA [Suspect]
     Active Substance: ALBUTEROL SULFATE
     Indication: EXPOSURE TO FUNGUS
     Dosage: UNK UNK, USED THE INHALER A MAXIMUM OF 1 TO 3 TIMES PER YEAR
     Route: 065
  2. VENTOLIN HFA [Suspect]
     Active Substance: ALBUTEROL SULFATE
     Indication: ALLERGY TO ARTHROPOD STING
     Dosage: UNK UNK, USED THE INHALER A MAXIMUM OF 1 TO 3 TIMES PER YEAR
     Route: 065
     Dates: start: 2019

REACTIONS (5)
  - Unevaluable event [Unknown]
  - Expired product administered [Unknown]
  - Dyspnoea [Unknown]
  - Product use in unapproved indication [Unknown]
  - Product dose omission [Recovered/Resolved]

NARRATIVE: CASE EVENT DATE: 2019
